FAERS Safety Report 26048118 (Version 1)
Quarter: 2025Q4

REPORT INFORMATION
  Report Type: Spontaneous
  Country: US (occurrence: US)
  Receive Date: 20251114
  Receipt Date: 20251114
  Transmission Date: 20260118
  Serious: No
  Sender: PRASCO
  Company Number: US-Prasco Laboratories-PRAS20250385

PATIENT
  Age: 20 Year

DRUGS (1)
  1. DEXTROAMPHETAMINE SULFATE [Suspect]
     Active Substance: DEXTROAMPHETAMINE SULFATE
     Indication: Attention deficit hyperactivity disorder
     Dosage: 20 ML PER DAY, SPLIT INTO 3
     Route: 048

REACTIONS (5)
  - Brain fog [Unknown]
  - Dizziness [Unknown]
  - Tremor [Unknown]
  - Malaise [Unknown]
  - Pyrexia [Unknown]

NARRATIVE: CASE EVENT DATE: 20250101
